FAERS Safety Report 7269400-9 (Version None)
Quarter: 2011Q1

REPORT INFORMATION
  Report Type: 
  Country: None (occurrence: None)
  Receive Date: 20110124
  Receipt Date: 20110110
  Transmission Date: 20110831
  Serious: Yes (Death)
  Sender: FDA-Public Use
  Company Number: 025325

PATIENT
  Age: 29 Year
  Sex: Male

DRUGS (7)
  1. TIZANIDINE [Suspect]
  2. HYDROCODONE BITARTRATE + ACETAMINOPHEN [Suspect]
  3. LEVETIRACETAM [Suspect]
  4. FENTANYL [Suspect]
     Dosage: TRANSDERMAL
     Route: 062
  5. PRIMIDONE [Suspect]
  6. VENLAFAXINE [Suspect]
  7. CLONAZEPAM [Suspect]

REACTIONS (3)
  - COMPLETED SUICIDE [None]
  - RESPIRATORY ARREST [None]
  - CARDIAC ARREST [None]
